FAERS Safety Report 21147734 (Version 2)
Quarter: 2022Q4

REPORT INFORMATION
  Report Type: Report from Study
  Country: US (occurrence: US)
  Receive Date: 20220729
  Receipt Date: 20221028
  Transmission Date: 20230113
  Serious: No
  Sender: FDA-Public Use
  Company Number: US-BIOVITRUM-2022US05418

PATIENT
  Age: 44 Year
  Sex: Male

DRUGS (2)
  1. KINERET [Suspect]
     Active Substance: ANAKINRA
     Indication: Pericarditis
     Dates: start: 20220324
  2. KINERET [Suspect]
     Active Substance: ANAKINRA
     Dates: start: 20210723

REACTIONS (6)
  - Exposure to SARS-CoV-2 [Unknown]
  - Stomatitis [Unknown]
  - Injection site pain [Unknown]
  - Injection site erythema [Unknown]
  - Product dose omission issue [Unknown]
  - Off label use [Unknown]

NARRATIVE: CASE EVENT DATE: 20210723
